FAERS Safety Report 4427453-7 (Version None)
Quarter: 2004Q3

REPORT INFORMATION
  Report Type: 
  Country: None (occurrence: None)
  Receive Date: 20040812
  Receipt Date: 20040730
  Transmission Date: 20050211
  Serious: Yes (Other)
  Sender: FDA-Public Use
  Company Number: HQWYE708102AUG04

PATIENT
  Age: 1 Year
  Sex: Female
  Weight: 14.53 kg

DRUGS (8)
  1. RAPAMUNE [Suspect]
     Indication: LIVER TRANSPLANT
     Dosage: 2 MG ONCE DAILY ALTERNATING WITH 1 MG ONCE DAILY, ORAL
     Route: 048
     Dates: start: 19991001
  2. RAPAMUNE [Suspect]
     Indication: LIVER TRANSPLANT
     Dosage: 2 MG ONCE DAILY ALTERNATING WITH 1 MG ONCE DAILY, ORAL
     Route: 048
  3. ACTIGALL [Concomitant]
  4. PROGRAF [Concomitant]
  5. MEDROL [Concomitant]
  6. BACTRIM [Concomitant]
  7. CYCLOSPORINE [Concomitant]
  8. CELLCEPT [Concomitant]

REACTIONS (6)
  - ABDOMINAL PAIN UPPER [None]
  - CONSTIPATION [None]
  - FAECALOMA [None]
  - HEPATIC MASS [None]
  - RASH [None]
  - RASH SCALY [None]
